FAERS Safety Report 21499059 (Version 1)
Quarter: 2022Q4

REPORT INFORMATION
  Report Type: Spontaneous
  Country: US (occurrence: None)
  Receive Date: 20221022
  Receipt Date: 20221022
  Transmission Date: 20230113
  Serious: Yes (unspecified)
  Sender: FDA-Public Use
  Company Number: None

PATIENT
  Age: 54 Year
  Sex: Female
  Weight: 58.5 kg

DRUGS (7)
  1. DOTAREM [Suspect]
     Active Substance: GADOTERATE MEGLUMINE
     Indication: Magnetic resonance imaging
     Dates: start: 20220203, end: 20220203
  2. VITAMINS [Concomitant]
     Active Substance: VITAMINS
  3. HERBALS\TURMERIC [Concomitant]
     Active Substance: HERBALS\TURMERIC
  4. FISH OIL [Concomitant]
     Active Substance: FISH OIL
  5. nac [Concomitant]
  6. DIETARY SUPPLEMENT\HERBALS\MILK THISTLE [Concomitant]
     Active Substance: DIETARY SUPPLEMENT\HERBALS\MILK THISTLE
  7. VITAMIN D [Concomitant]
     Active Substance: VITAMIN D NOS

REACTIONS (14)
  - Contrast media allergy [None]
  - Urticaria [None]
  - Sneezing [None]
  - Inflammation [None]
  - Myalgia [None]
  - Myalgia [None]
  - Muscular weakness [None]
  - Tremor [None]
  - Arthralgia [None]
  - Weight decreased [None]
  - Dermatitis allergic [None]
  - Eye allergy [None]
  - Rhinitis allergic [None]
  - Feeling abnormal [None]

NARRATIVE: CASE EVENT DATE: 20220203
